FAERS Safety Report 23552624 (Version 1)
Quarter: 2024Q1

REPORT INFORMATION
  Report Type: Spontaneous
  Country: IT (occurrence: IT)
  Receive Date: 20240222
  Receipt Date: 20240222
  Transmission Date: 20240410
  Serious: Yes (Hospitalization)
  Sender: FDA-Public Use
  Company Number: IT-SUN PHARMACEUTICAL INDUSTRIES LTD-2024RR-432110

PATIENT
  Age: 12 Hour
  Sex: Female
  Weight: 2 kg

DRUGS (2)
  1. OMEPRAZOLE [Suspect]
     Active Substance: OMEPRAZOLE
     Indication: Product used for unknown indication
     Dosage: UNK
     Route: 040
     Dates: start: 20231014, end: 20231019
  2. PHENYTOIN [Suspect]
     Active Substance: PHENYTOIN
     Indication: Epilepsy
     Dosage: UNK
     Route: 040
     Dates: start: 20231014, end: 20231016

REACTIONS (3)
  - Sopor [Recovered/Resolved]
  - Drug level increased [Recovered/Resolved]
  - Respiratory depression [Recovered/Resolved]
